FAERS Safety Report 5989435-3 (Version None)
Quarter: 2008Q4

REPORT INFORMATION
  Report Type: 
  Country: None (occurrence: None)
  Receive Date: 20081205
  Receipt Date: 20081121
  Transmission Date: 20090506
  Serious: Yes (Hospitalization)
  Sender: FDA-Public Use
  Company Number: KV200800520

PATIENT
  Sex: Male

DRUGS (2)
  1. MORPHINE SULFATE [Suspect]
     Dosage: 30 TO 60 MG, PRN, ORAL
     Route: 048
     Dates: start: 20080828, end: 20080901
  2. SEVERAL OTHER MEDICATIONS [Concomitant]

REACTIONS (4)
  - COMA [None]
  - CYANOSIS [None]
  - PRODUCT QUALITY ISSUE [None]
  - RESPIRATORY RATE DECREASED [None]
